FAERS Safety Report 18640057 (Version 1)
Quarter: 2020Q4

REPORT INFORMATION
  Report Type: Spontaneous
  Country: US (occurrence: US)
  Receive Date: 20201220
  Receipt Date: 20201220
  Transmission Date: 20210114
  Serious: No
  Sender: FDA-Public Use
  Company Number: US-PACIRA-202000490

PATIENT

DRUGS (3)
  1. MARCAINE [Suspect]
     Active Substance: BUPIVACAINE HYDROCHLORIDE
     Indication: NERVE BLOCK
     Dosage: 20 ML ADMIXED WITH 10 ML OF EXPAREL
     Route: 065
  2. EXPAREL [Suspect]
     Active Substance: BUPIVACAINE
     Indication: NERVE BLOCK
     Dosage: 10 ML ADMIXED WITH 20 ML OF 1/4% MARCAINE
     Route: 065
  3. LIDOCAINE. [Suspect]
     Active Substance: LIDOCAINE
     Indication: LOCAL ANAESTHESIA
     Dosage: NOT PROVIDED; SHORTLY??AFTER EXPAREL WAS ADMINISTERED
     Route: 058

REACTIONS (1)
  - Labelled drug-drug interaction medication error [Unknown]
